FAERS Safety Report 8200510-5 (Version None)
Quarter: 2012Q1

REPORT INFORMATION
  Report Type: 
  Country: None (occurrence: None)
  Receive Date: 20120312
  Receipt Date: 20120302
  Transmission Date: 20120608
  Serious: Yes (Hospitalization, Other)
  Sender: FDA-Public Use
  Company Number: US-BAYER-2011-084585

PATIENT
  Age: 33 Year
  Sex: Female
  Weight: 73 kg

DRUGS (9)
  1. DROSPIRENONE AND ETHINYL ESTRADIOL [Suspect]
     Indication: CONTRACEPTION
  2. ALLERGY SHOTS [Concomitant]
  3. YASMIN [Suspect]
     Indication: CONTRACEPTION
     Dosage: UNK
     Dates: start: 20011101
  4. ADVAIR DISKUS 100/50 [Concomitant]
     Dosage: UNK UNK, PRN
     Route: 048
  5. INDERAL [Concomitant]
     Route: 048
  6. DROSPIRENONE AND ETHINYL ESTRADIOL [Suspect]
     Indication: PREMENSTRUAL SYNDROME
  7. YASMIN [Suspect]
     Indication: PREMENSTRUAL SYNDROME
  8. METOPROLOL [Concomitant]
     Dosage: UNK
     Route: 048
     Dates: start: 19990101
  9. BENTYL [Concomitant]
     Route: 048

REACTIONS (8)
  - PAIN [None]
  - GALLBLADDER DISORDER [None]
  - DYSPEPSIA [None]
  - ANHEDONIA [None]
  - CHOLECYSTITIS CHRONIC [None]
  - EMOTIONAL DISTRESS [None]
  - INJURY [None]
  - ANXIETY [None]
